FAERS Safety Report 9961299 (Version 4)
Quarter: 2014Q2

REPORT INFORMATION
  Report Type: Report from Study
  Country: BR (occurrence: BR)
  Receive Date: 20140305
  Receipt Date: 20140526
  Transmission Date: 20141212
  Serious: Yes (Other)
  Sender: FDA-Public Use
  Company Number: PHHY2014BR007939

PATIENT
  Sex: Female
  Weight: 66 kg

DRUGS (13)
  1. ILARIS [Suspect]
     Indication: STILL^S DISEASE ADULT ONSET
     Dosage: 150 MG, UNK
     Route: 058
     Dates: start: 20131226
  2. ILARIS [Suspect]
     Indication: OFF LABEL USE
     Dosage: 1 U, EACH 5 WEEKS
     Dates: start: 201310
  3. ILARIS [Suspect]
     Dosage: 1 U, EACH 6 WEEKS
     Dates: start: 201309, end: 201310
  4. ILARIS [Suspect]
     Dosage: 150 MG, EACH 4 WEEKS
     Dates: start: 201311
  5. METICORTEN [Concomitant]
     Indication: STILL^S DISEASE ADULT ONSET
  6. DAFORIN [Concomitant]
     Indication: JUVENILE IDIOPATHIC ARTHRITIS
     Dosage: 1 U, QD
     Route: 048
     Dates: start: 201307
  7. PANTOPRAZOLE [Concomitant]
     Indication: PROPHYLAXIS AGAINST GASTROINTESTINAL ULCER
     Dosage: 1 U,
     Route: 048
     Dates: start: 201301
  8. ADVACAL//CALCIUM [Concomitant]
     Indication: CALCINOSIS
     Dosage: 1 U, QD
     Route: 048
     Dates: start: 201301
  9. EGIDE [Concomitant]
     Indication: JUVENILE IDIOPATHIC ARTHRITIS
     Dosage: 1 U, QD
     Route: 048
     Dates: start: 201307
  10. MAXXI D3 [Concomitant]
     Indication: VITAMIN SUPPLEMENTATION
     Dosage: 4 U, UNK
  11. CENTRUM [Concomitant]
     Indication: VITAMIN SUPPLEMENTATION
     Dosage: 1 U, QD
     Route: 048
  12. OS-CAL D [Concomitant]
     Indication: CALCINOSIS
     Dosage: 1 U, QD
     Route: 048
  13. OSTEOBLOCK [Concomitant]
     Route: 048

REACTIONS (7)
  - Astigmatism [Recovering/Resolving]
  - Endometriosis [Not Recovered/Not Resolved]
  - Haemorrhoids [Not Recovered/Not Resolved]
  - Thyroid disorder [Recovered/Resolved]
  - Hyperhidrosis [Unknown]
  - Still^s disease adult onset [Unknown]
  - Inappropriate schedule of drug administration [Unknown]
